FAERS Safety Report 8495192-1 (Version None)
Quarter: 2012Q3

REPORT INFORMATION
  Report Type: 
  Country: None (occurrence: None)
  Receive Date: 20120702
  Receipt Date: 20120702
  Transmission Date: 20120928
  Serious: Yes (Other)
  Sender: FDA-Public Use
  Company Number: None

PATIENT
  Age: 60 Year
  Sex: Female
  Weight: 83.9154 kg

DRUGS (1)
  1. NADOLOL [Suspect]
     Indication: HEADACHE
     Dosage: 1 CAPSULE, ONE TIME, PO
     Route: 048
     Dates: start: 20120615, end: 20120615

REACTIONS (1)
  - COLITIS MICROSCOPIC [None]
